FAERS Safety Report 19676018 (Version 7)
Quarter: 2022Q2

REPORT INFORMATION
  Report Type: Other
  Country: GB (occurrence: GB)
  Receive Date: 20210809
  Receipt Date: 20220519
  Transmission Date: 20220721
  Serious: Yes (Death, Hospitalization, Other)
  Sender: FDA-Public Use
  Company Number: GB-MAYNE PHARMA-2021MYN000492

PATIENT

DRUGS (122)
  1. TAMOXIFEN CITRATE [Suspect]
     Active Substance: TAMOXIFEN CITRATE
     Indication: HER2 positive breast cancer
     Dosage: 1480 MG
  2. TAMOXIFEN CITRATE [Suspect]
     Active Substance: TAMOXIFEN CITRATE
     Indication: Breast cancer metastatic
     Dosage: 20 MG, QD
     Route: 048
     Dates: start: 20180704, end: 20180915
  3. TRASTUZUMAB [Suspect]
     Active Substance: TRASTUZUMAB
     Indication: HER2 positive breast cancer
     Dosage: 525 MG, EVERY 3 WEEKS
     Route: 041
     Dates: start: 20160225, end: 20160225
  4. TRASTUZUMAB [Suspect]
     Active Substance: TRASTUZUMAB
     Indication: Breast cancer metastatic
     Dosage: 400 MG, EVERY 3 WEEKS
     Route: 042
     Dates: start: 20160225, end: 20160617
  5. TRASTUZUMAB [Suspect]
     Active Substance: TRASTUZUMAB
     Dosage: 350 MG, EVERY 3 WEEKS
     Route: 042
     Dates: start: 20160707, end: 20180822
  6. TRASTUZUMAB [Suspect]
     Active Substance: TRASTUZUMAB
     Dosage: 220 MG, EVERY 2 WEEKS
     Route: 042
     Dates: start: 20180928
  7. PERTUZUMAB [Suspect]
     Active Substance: PERTUZUMAB
     Indication: HER2 positive breast cancer
     Dosage: 840MG, LOADING DOSE, EVERY 3 WEEKS
     Route: 042
     Dates: start: 20160225
  8. PERTUZUMAB [Suspect]
     Active Substance: PERTUZUMAB
     Indication: Breast cancer metastatic
     Dosage: 420 MG, EVERY 3 WEEKS
     Route: 042
     Dates: start: 20160225, end: 20180704
  9. DOCETAXEL [Suspect]
     Active Substance: DOCETAXEL
     Indication: Breast cancer metastatic
     Dosage: 65 MG, Q3WK
     Route: 042
     Dates: start: 20160226
  10. TAXOTERE [Suspect]
     Active Substance: DOCETAXEL
     Indication: HER2 positive breast cancer
     Dosage: 65 MG, Q3WK
     Route: 042
     Dates: start: 20160226, end: 20160226
  11. TAXOTERE [Suspect]
     Active Substance: DOCETAXEL
     Indication: Breast cancer metastatic
     Dosage: 65 MG, Q3WK
     Route: 042
     Dates: start: 20180226, end: 20180226
  12. FEMARA [Suspect]
     Active Substance: LETROZOLE
     Indication: HER2 positive breast cancer
     Dosage: 2.5 MG, QD
     Route: 048
     Dates: start: 20160413, end: 20180704
  13. LETROZOLE [Suspect]
     Active Substance: LETROZOLE
     Indication: HER2 positive breast cancer
     Dosage: 2.5 MG, QD
     Route: 048
     Dates: start: 20160413, end: 20180704
  14. XGEVA [Suspect]
     Active Substance: DENOSUMAB
     Indication: Product used for unknown indication
     Dosage: 120 MG, EVERY 3 TO 4 WEEKS
     Route: 058
     Dates: start: 20180110, end: 20190426
  15. ADO-TRASTUZUMAB EMTANSINE [Suspect]
     Active Substance: ADO-TRASTUZUMAB EMTANSINE
     Indication: HER2 positive breast cancer
     Dosage: UNK
     Route: 065
  16. ADO-TRASTUZUMAB EMTANSINE [Suspect]
     Active Substance: ADO-TRASTUZUMAB EMTANSINE
     Indication: Product used for unknown indication
     Dosage: 220 MG, Q3WK
     Route: 042
     Dates: start: 20180928, end: 20190315
  17. NERATINIB [Suspect]
     Active Substance: NERATINIB
     Indication: HER2 positive breast cancer
     Dosage: 240 MG, QD
     Route: 048
     Dates: start: 20190403
  18. CINACALCET HYDROCHLORIDE [Suspect]
     Active Substance: CINACALCET HYDROCHLORIDE
     Indication: Hypercalcaemia of malignancy
     Dosage: 30 MG, QD
     Route: 048
     Dates: start: 20190413, end: 201907
  19. ZOPICLONE [Concomitant]
     Active Substance: ZOPICLONE
     Indication: Prophylaxis
     Dosage: 50 MG, UNK
     Route: 065
     Dates: start: 20160217
  20. ZOPICLONE [Concomitant]
     Active Substance: ZOPICLONE
     Dosage: 5MG UNK
     Route: 065
     Dates: start: 201809
  21. ZOLEDRONIC ACID [Concomitant]
     Active Substance: ZOLEDRONIC ACID
     Indication: Glossodynia
     Dosage: UNK
     Route: 065
     Dates: start: 20180915
  22. ZOLEDRONIC ACID [Concomitant]
     Active Substance: ZOLEDRONIC ACID
     Indication: Urinary tract infection
     Dosage: 80MG, UNK
     Route: 065
     Dates: start: 20190425
  23. ZOLEDRONIC ACID [Concomitant]
     Active Substance: ZOLEDRONIC ACID
     Indication: Product used for unknown indication
     Dosage: 3.5 MG, EVERY 3-4 WEEKS FOR 9 CYCLES THEN 3 MONTHSUNK
     Route: 042
     Dates: start: 20160414, end: 20170112
  24. ZOLEDRONIC ACID [Concomitant]
     Active Substance: ZOLEDRONIC ACID
     Dosage: 3.3MG, UNK
     Route: 042
     Dates: start: 20170209, end: 20170323
  25. ZOLEDRONIC ACID [Concomitant]
     Active Substance: ZOLEDRONIC ACID
     Dosage: 3MG, UNK
     Route: 042
     Dates: start: 20170628, end: 20171220
  26. ZOLEDRONIC ACID [Concomitant]
     Active Substance: ZOLEDRONIC ACID
     Dosage: 3.5 MG, UNK
     Route: 042
     Dates: start: 20190408
  27. ZOLEDRONIC ACID [Concomitant]
     Active Substance: ZOLEDRONIC ACID
     Dosage: 3MG,UNK
     Route: 042
     Dates: start: 20190510, end: 20190529
  28. ZOLEDRONIC ACID [Concomitant]
     Active Substance: ZOLEDRONIC ACID
     Dosage: 3.3 MG, QMONTH
     Route: 065
     Dates: start: 20160226, end: 20170323
  29. TRIMETHOPRIM [Concomitant]
     Active Substance: TRIMETHOPRIM
     Indication: Hypertension
     Dosage: UNK
     Route: 065
     Dates: start: 20190611
  30. TRIMETHOPRIM [Concomitant]
     Active Substance: TRIMETHOPRIM
     Indication: Hypophosphataemia
     Dosage: 40 MG
     Route: 065
     Dates: start: 20190620
  31. TRAMADOL HYDROCHLORIDE [Concomitant]
     Active Substance: TRAMADOL HYDROCHLORIDE
     Indication: Pulmonary embolism
     Dosage: 50 MG, QD
     Route: 048
     Dates: start: 20160217
  32. TRAMADOL HYDROCHLORIDE [Concomitant]
     Active Substance: TRAMADOL HYDROCHLORIDE
     Indication: Product used for unknown indication
     Dosage: 200 MG, QD
     Route: 048
     Dates: start: 20160217
  33. TRAMADOL HYDROCHLORIDE [Concomitant]
     Active Substance: TRAMADOL HYDROCHLORIDE
     Dosage: 80 MG, UNK
     Route: 065
     Dates: start: 20190425
  34. TRAMADOL HYDROCHLORIDE [Concomitant]
     Active Substance: TRAMADOL HYDROCHLORIDE
     Dosage: UNK
     Route: 065
  35. TINZAPARIN [Concomitant]
     Active Substance: TINZAPARIN
     Indication: Blood potassium decreased
     Dosage: 30 MG, QD
     Route: 065
     Dates: start: 20160225
  36. TINZAPARIN [Concomitant]
     Active Substance: TINZAPARIN
     Indication: Product used for unknown indication
     Dosage: 100 MG, UNK
     Route: 065
  37. SODIUM PHOSPHATE, MONOBASIC [Concomitant]
     Active Substance: SODIUM PHOSPHATE, MONOBASIC
     Indication: Hypophosphataemia
     Dosage: 10 MG, UNK
     Route: 065
     Dates: start: 20160225
  38. SODIUM PHOSPHATE, MONOBASIC [Concomitant]
     Active Substance: SODIUM PHOSPHATE, MONOBASIC
     Indication: Product used for unknown indication
     Dosage: UNK
     Route: 065
     Dates: start: 20160322
  39. SODIUM PHOSPHATE, MONOBASIC [Concomitant]
     Active Substance: SODIUM PHOSPHATE, MONOBASIC
     Dosage: 2 DF
     Route: 048
     Dates: start: 20190611, end: 20190614
  40. SODIUM CHLORIDE [Concomitant]
     Active Substance: SODIUM CHLORIDE
     Indication: Hypophosphataemia
     Dosage: 200 MG, UNK
     Route: 065
  41. SODIUM CHLORIDE [Concomitant]
     Active Substance: SODIUM CHLORIDE
     Indication: Product used for unknown indication
     Dosage: UNK
     Route: 065
     Dates: start: 20160322
  42. SITAGLIPTIN [Concomitant]
     Active Substance: SITAGLIPTIN
     Indication: Hypophosphataemia
     Dosage: 400 MG, UNK
     Route: 065
  43. SITAGLIPTIN [Concomitant]
     Active Substance: SITAGLIPTIN
     Indication: Product used for unknown indication
     Dosage: UNK
     Route: 065
     Dates: start: 20181128
  44. POTASSIUM [Concomitant]
     Active Substance: POTASSIUM
     Indication: Blood phosphorus decreased
     Dosage: UNK
     Route: 065
  45. POTASSIUM [Concomitant]
     Active Substance: POTASSIUM
     Indication: Product used for unknown indication
     Dosage: UNK
     Route: 065
     Dates: start: 20190611
  46. RIVAROXABAN [Concomitant]
     Active Substance: RIVAROXABAN
     Indication: Blood phosphorus decreased
     Dosage: 16 MG, UNK
     Route: 065
     Dates: start: 20160225
  47. RIVAROXABAN [Concomitant]
     Active Substance: RIVAROXABAN
     Indication: Product used for unknown indication
     Dosage: UNK
     Route: 065
     Dates: start: 20190611
  48. POTASSIUM CHLORIDE [Concomitant]
     Active Substance: POTASSIUM CHLORIDE
     Indication: Gastrointestinal motility disorder
     Dosage: 8 MG
     Route: 065
     Dates: start: 20160225
  49. POTASSIUM CHLORIDE [Concomitant]
     Active Substance: POTASSIUM CHLORIDE
     Indication: Product used for unknown indication
     Dosage: , EVERY 3-4 WEEKS FOR 9 CYCLES THEN 3 MONTHSUNK
     Route: 042
     Dates: start: 20190611, end: 20190620
  50. SODIUM BICARBONATE [Concomitant]
     Active Substance: SODIUM BICARBONATE
     Indication: Hypomagnesaemia
     Dosage: 120 MG
     Route: 065
     Dates: start: 20180110
  51. SODIUM BICARBONATE [Concomitant]
     Active Substance: SODIUM BICARBONATE
     Indication: Product used for unknown indication
     Dosage: UNK
     Route: 048
     Dates: start: 20190611, end: 20190614
  52. SODIUM BICARBONATE [Concomitant]
     Active Substance: SODIUM BICARBONATE
     Indication: Hypophosphataemia
  53. POTASSIUM BICARBONATE [Concomitant]
     Active Substance: POTASSIUM BICARBONATE
     Indication: Prophylaxis
     Dosage: 120 MG
     Route: 065
     Dates: start: 20180110
  54. POTASSIUM BICARBONATE [Concomitant]
     Active Substance: POTASSIUM BICARBONATE
     Indication: Product used for unknown indication
     Dosage: 2 DF
     Route: 048
     Dates: start: 20190611, end: 20190614
  55. POTASSIUM BICARBONATE [Concomitant]
     Active Substance: POTASSIUM BICARBONATE
     Indication: Hypophosphataemia
  56. SODIUM PHOSPHATE, MONOBASIC, ANHYDROUS [Concomitant]
     Active Substance: SODIUM PHOSPHATE, MONOBASIC, ANHYDROUS
     Indication: Rash pruritic
     Dosage: UNK
     Route: 065
     Dates: start: 20180707
  57. SODIUM PHOSPHATE, MONOBASIC, ANHYDROUS [Concomitant]
     Active Substance: SODIUM PHOSPHATE, MONOBASIC, ANHYDROUS
     Indication: Product used for unknown indication
     Dosage: 2 DF
     Route: 048
     Dates: start: 20190611, end: 20190614
  58. SODIUM PHOSPHATE, MONOBASIC, ANHYDROUS [Concomitant]
     Active Substance: SODIUM PHOSPHATE, MONOBASIC, ANHYDROUS
     Dosage: 2 DF
     Route: 048
     Dates: start: 20190618, end: 20190625
  59. MESALAMINE [Concomitant]
     Active Substance: MESALAMINE
     Indication: Abdominal discomfort
     Dosage: 800 MG
     Route: 048
     Dates: start: 20170523, end: 2017
  60. MESALAMINE [Concomitant]
     Active Substance: MESALAMINE
     Indication: Prophylaxis
     Dosage: 1 DF
     Route: 065
  61. MESALAMINE [Concomitant]
     Active Substance: MESALAMINE
     Indication: Product used for unknown indication
     Dosage: UNK
     Route: 065
     Dates: start: 20190611
  62. METOCLOPRAMIDE [Concomitant]
     Active Substance: METOCLOPRAMIDE
     Indication: Back pain
     Dosage: 30 MG
     Route: 065
     Dates: start: 20190413
  63. METOCLOPRAMIDE [Concomitant]
     Active Substance: METOCLOPRAMIDE
     Dosage: 2 DF
     Route: 065
     Dates: start: 20190618
  64. METOCLOPRAMIDE [Concomitant]
     Active Substance: METOCLOPRAMIDE
     Dosage: 10 MG, EVERY DAY
     Route: 048
  65. METFORMIN [Concomitant]
     Active Substance: METFORMIN HYDROCHLORIDE
     Indication: Hypercalcaemia of malignancy
     Dosage: 1000 MG,EVERY DAY
     Route: 065
     Dates: start: 20160225
  66. METFORMIN [Concomitant]
     Active Substance: METFORMIN HYDROCHLORIDE
     Indication: Product used for unknown indication
     Dosage: 0.8 %
     Route: 065
     Dates: start: 20160225
  67. METFORMIN [Concomitant]
     Active Substance: METFORMIN HYDROCHLORIDE
     Dosage: UNK
     Route: 065
     Dates: start: 20190423
  68. METFORMIN [Concomitant]
     Active Substance: METFORMIN HYDROCHLORIDE
     Dosage: 2000 MG, QD
     Route: 048
     Dates: start: 20160217
  69. MAGNESIUM GLYCEROPHOSPHATE [Concomitant]
     Active Substance: MAGNESIUM GLYCEROPHOSPHATE
     Indication: Prophylaxis
     Dosage: 0.2 %
     Route: 065
     Dates: start: 20160225
  70. MAGNESIUM GLYCEROPHOSPHATE [Concomitant]
     Active Substance: MAGNESIUM GLYCEROPHOSPHATE
     Indication: Product used for unknown indication
     Dosage: 2 DF
     Route: 065
     Dates: start: 20190611
  71. POLYETHYLENE GLYCOLS [Concomitant]
     Active Substance: POLYETHYLENE GLYCOLS
     Indication: Glossodynia
     Dosage: 8 MG
     Route: 065
  72. POLYETHYLENE GLYCOLS [Concomitant]
     Active Substance: POLYETHYLENE GLYCOLS
     Indication: Product used for unknown indication
     Dosage: 2 DF 2 SACHETS ONCE A DAY
     Route: 065
     Dates: start: 20190618
  73. LOPERAMIDE [Concomitant]
     Active Substance: LOPERAMIDE
     Indication: Hypertension
     Dosage: 2 DF
     Route: 065
     Dates: start: 20160323
  74. LOPERAMIDE [Concomitant]
     Active Substance: LOPERAMIDE
     Indication: Product used for unknown indication
     Dosage: 2 UNK
     Route: 065
     Dates: start: 20190611
  75. LINAGLIPTIN [Concomitant]
     Active Substance: LINAGLIPTIN
     Indication: Product used for unknown indication
     Dosage: UNK
     Route: 065
     Dates: start: 20180423
  76. LINAGLIPTIN [Concomitant]
     Active Substance: LINAGLIPTIN
     Dosage: UNK
     Route: 065
     Dates: start: 20190403
  77. LINAGLIPTIN [Concomitant]
     Active Substance: LINAGLIPTIN
     Dosage: 5 MG, QD
     Route: 048
     Dates: start: 201809, end: 201905
  78. GLICLAZIDE [Concomitant]
     Active Substance: GLICLAZIDE
     Indication: Product used for unknown indication
     Dosage: 800 MG
     Route: 065
     Dates: start: 20170523
  79. GLICLAZIDE [Concomitant]
     Active Substance: GLICLAZIDE
     Dosage: 80 MG, QD
     Route: 048
     Dates: start: 20190425, end: 201905
  80. GLICLAZIDE [Concomitant]
     Active Substance: GLICLAZIDE
     Dosage: 40 MG, QD
     Route: 048
     Dates: start: 20190620, end: 20190705
  81. GLICLAZIDE [Concomitant]
     Active Substance: GLICLAZIDE
     Dosage: 80 MG, QD
     Route: 048
     Dates: start: 201809, end: 20190424
  82. GLICLAZIDE [Concomitant]
     Active Substance: GLICLAZIDE
     Dosage: 9 UNK
     Route: 065
     Dates: start: 20190403
  83. DOMPERIDONE [Concomitant]
     Active Substance: DOMPERIDONE
     Indication: Product used for unknown indication
     Dosage: 10 MG, QD
     Route: 048
     Dates: start: 20160225
  84. DOMPERIDONE [Concomitant]
     Active Substance: DOMPERIDONE
     Dosage: 30 MG, QD
     Route: 048
     Dates: start: 20160225
  85. DOMPERIDONE [Concomitant]
     Active Substance: DOMPERIDONE
     Dosage: 2400 MG, UNK
     Route: 065
     Dates: start: 20170523
  86. DOMPERIDONE [Concomitant]
     Active Substance: DOMPERIDONE
     Dosage: 5 ML
     Route: 065
     Dates: start: 20190606
  87. DOCUSATE SODIUM [Concomitant]
     Active Substance: DOCUSATE SODIUM
     Indication: Product used for unknown indication
     Dosage: 200 MG, EVERY DAY
     Route: 048
  88. DOCUSATE SODIUM [Concomitant]
     Active Substance: DOCUSATE SODIUM
     Dosage: 30MG, UNK
     Route: 065
  89. DIPROBASE [PARAFFIN, LIQUID;WHITE SOFT PARAFFIN] [Concomitant]
     Indication: Product used for unknown indication
     Dosage: 20 MG, UNK
     Route: 065
  90. DIPROBASE [PARAFFIN, LIQUID;WHITE SOFT PARAFFIN] [Concomitant]
     Dosage: 30 MG, UNK
     Route: 065
  91. DEXAMETHASONE [Concomitant]
     Active Substance: DEXAMETHASONE
     Indication: Product used for unknown indication
     Dosage: 8 MG, QD
     Route: 048
     Dates: start: 20160225
  92. DEXAMETHASONE [Concomitant]
     Active Substance: DEXAMETHASONE
     Dosage: 16 MG, QD
     Route: 048
     Dates: start: 20160225
  93. DEXAMETHASONE [Concomitant]
     Active Substance: DEXAMETHASONE
     Dosage: 5MG, UNK
     Route: 065
  94. DEXAMETHASONE [Concomitant]
     Active Substance: DEXAMETHASONE
     Dosage: 1000MG, UNK
     Route: 065
  95. DENOSUMAB [Concomitant]
     Active Substance: DENOSUMAB
     Indication: Product used for unknown indication
     Dosage: 120 MG, EVERY 3-4 WEEKS
     Route: 058
     Dates: start: 20180110, end: 20190426
  96. DENOSUMAB [Concomitant]
     Active Substance: DENOSUMAB
     Dosage: 5 MG, UNK
     Route: 065
     Dates: start: 20190915
  97. DENOSUMAB [Concomitant]
     Active Substance: DENOSUMAB
     Dosage: 2000MG,  UNK
     Route: 065
  98. COCODAMOL [Concomitant]
     Active Substance: ACETAMINOPHEN\CODEINE PHOSPHATE
     Indication: Product used for unknown indication
     Dosage: 12 MMOL
     Route: 065
     Dates: start: 20160526
  99. COCODAMOL [Concomitant]
     Active Substance: ACETAMINOPHEN\CODEINE PHOSPHATE
     Dosage: UNK
     Route: 065
     Dates: start: 20190620
  100. COCODAMOL [Concomitant]
     Active Substance: ACETAMINOPHEN\CODEINE PHOSPHATE
     Dosage: 1 DOSAGE FORM, AS NECESSARY
     Route: 048
  101. CINACALCET [Concomitant]
     Active Substance: CINACALCET
     Indication: Hypercalcaemia of malignancy
     Dosage: 3.75 MG, UNK
     Route: 065
     Dates: start: 20160217
  102. CINACALCET [Concomitant]
     Active Substance: CINACALCET
     Dosage: 4 MMOL, UNK
     Route: 065
     Dates: start: 20160526
  103. CHLORHEXIDINE GLUCONATE [Concomitant]
     Active Substance: CHLORHEXIDINE GLUCONATE
     Indication: Product used for unknown indication
     Dosage: .2% MOUTHWASH EVERY DAY
     Route: 048
     Dates: start: 20160225
  104. CHLORHEXIDINE GLUCONATE [Concomitant]
     Active Substance: CHLORHEXIDINE GLUCONATE
     Dosage: 3.5 MG, UNK
     Route: 065
     Dates: start: 20160414
  105. CHLORHEXIDINE GLUCONATE [Concomitant]
     Active Substance: CHLORHEXIDINE GLUCONATE
     Dosage: UNK
     Route: 065
  106. CANDESARTAN [Concomitant]
     Active Substance: CANDESARTAN
     Indication: Product used for unknown indication
     Dosage: 3.5 MG, UNK
     Route: 065
     Dates: start: 20190408
  107. CANDESARTAN [Concomitant]
     Active Substance: CANDESARTAN
     Dosage: UNK
     Route: 065
  108. CALCIUM\CHOLECALCIFEROL [Concomitant]
     Active Substance: CALCIUM\CHOLECALCIFEROL
     Indication: Product used for unknown indication
     Dosage: 3 MG, UNK
     Route: 065
     Dates: start: 20190510
  109. BUDESONIDE [Concomitant]
     Active Substance: BUDESONIDE
     Indication: Product used for unknown indication
     Dosage: 3 MG, UNK
     Route: 065
     Dates: start: 20190510
  110. BUDESONIDE [Concomitant]
     Active Substance: BUDESONIDE
     Dosage: UNK
     Route: 065
  111. BUDESONIDE [Concomitant]
     Active Substance: BUDESONIDE
     Dosage: 9 MG, QD
     Route: 048
     Dates: start: 20190403, end: 20190523
  112. BENZYDAMINE HYDROCHLORIDE [Concomitant]
     Active Substance: BENZYDAMINE HYDROCHLORIDE
     Indication: Product used for unknown indication
     Dosage: 3.3 MG, UNK
     Route: 065
     Dates: start: 20170209
  113. BENZYDAMINE HYDROCHLORIDE [Concomitant]
     Active Substance: BENZYDAMINE HYDROCHLORIDE
     Dosage: 5 ML, UNK
     Route: 061
     Dates: start: 20190606, end: 20190705
  114. BENZYDAMINE HYDROCHLORIDE [Concomitant]
     Active Substance: BENZYDAMINE HYDROCHLORIDE
     Dosage: 4 MG, UNK
     Route: 065
     Dates: start: 201607
  115. ATORVASTATIN [Concomitant]
     Active Substance: ATORVASTATIN
     Indication: Product used for unknown indication
     Dosage: 2 MG, UNK
     Route: 065
     Dates: start: 20160225
  116. ATORVASTATIN [Concomitant]
     Active Substance: ATORVASTATIN
     Dosage: 3.3 UNK
     Route: 065
     Dates: start: 20160226
  117. AMLODIPINE [Concomitant]
     Active Substance: AMLODIPINE BESYLATE
     Indication: Product used for unknown indication
     Dosage: 5 MG, QD
     Route: 048
     Dates: start: 20180915, end: 20190529
  118. AMLODIPINE [Concomitant]
     Active Substance: AMLODIPINE BESYLATE
     Dosage: UNK
     Route: 065
     Dates: start: 20190412
  119. INSULIN HUMAN [Concomitant]
     Active Substance: INSULIN HUMAN
     Indication: Product used for unknown indication
     Dosage: 200 MG, UNK
     Route: 065
     Dates: start: 20160217
  120. INSULIN HUMAN [Concomitant]
     Active Substance: INSULIN HUMAN
     Dosage: 80 MG, UNK
     Route: 065
     Dates: start: 20190425
  121. INSULIN HUMAN [Concomitant]
     Active Substance: INSULIN HUMAN
     Dosage: UNK
     Route: 058
     Dates: start: 20190620, end: 20190705
  122. CHOLECALCIFEROL [Suspect]
     Active Substance: CHOLECALCIFEROL
     Indication: Product used for unknown indication
     Dosage: 2 DF, QD
     Route: 065
     Dates: start: 20160303

REACTIONS (10)
  - Disease progression [Fatal]
  - Acute kidney injury [Recovered/Resolved]
  - Drug interaction [Fatal]
  - Vomiting [Recovered/Resolved]
  - Urinary tract infection [Recovered/Resolved]
  - Diarrhoea [Recovered/Resolved]
  - Back pain [Not Recovered/Not Resolved]
  - Diarrhoea [Recovered/Resolved]
  - Weight decreased [Recovered/Resolved]
  - Pulmonary embolism [Fatal]

NARRATIVE: CASE EVENT DATE: 20180915
